FAERS Safety Report 9475060 (Version 1)
Quarter: 2013Q3

REPORT INFORMATION
  Report Type: Spontaneous
  Country: US (occurrence: US)
  Receive Date: 20130824
  Receipt Date: 20130824
  Transmission Date: 20140515
  Serious: No
  Sender: FDA-Public Use
  Company Number: US-B.I. PHARMACEUTICALS,INC./RIDGEFIELD-2013-BI-25534BP

PATIENT
  Sex: Male
  Weight: 93 kg

DRUGS (7)
  1. MICARDIS HCT TABLETS [Suspect]
     Indication: HYPERTENSION
     Dosage: STRENGTH: 80 MG / 12.5 MG; DAILY DOSE: 80 MG/12.5 MG
     Route: 048
     Dates: start: 2007, end: 2008
  2. ATORVASTATIN [Concomitant]
     Indication: HYPERCHOLESTEROLAEMIA
     Dosage: 10 MG
     Route: 048
  3. JALYN [Concomitant]
     Indication: BENIGN PROSTATIC HYPERPLASIA
     Dosage: STRENTH: 0.4MG/5MG, DAILY DOSE: 0.4MG/5MG
     Route: 048
  4. ASPIRIN [Concomitant]
     Indication: ISCHAEMIC HEART DISEASE PROPHYLAXIS
     Dosage: 81 MG
     Route: 048
  5. ASPIRIN [Concomitant]
     Indication: LARGE INTESTINE POLYP
  6. PANTOPRAZOLE [Concomitant]
     Indication: GASTROOESOPHAGEAL REFLUX DISEASE
     Dosage: 40 MG
     Route: 048
  7. PREVICID [Concomitant]
     Indication: GASTROOESOPHAGEAL REFLUX DISEASE
     Dosage: 60 MG
     Route: 048

REACTIONS (3)
  - Oedema peripheral [Recovered/Resolved]
  - Dizziness [Recovered/Resolved]
  - Dehydration [Recovered/Resolved]
